FAERS Safety Report 25254401 (Version 1)
Quarter: 2025Q2

REPORT INFORMATION
  Report Type: Spontaneous
  Country: BA (occurrence: BA)
  Receive Date: 20250430
  Receipt Date: 20250430
  Transmission Date: 20250717
  Serious: Yes (Other)
  Sender: AMGEN
  Company Number: BA-AMGEN-BIHSP2025082387

PATIENT
  Age: 63 Year
  Sex: Female

DRUGS (10)
  1. VECTIBIX [Suspect]
     Active Substance: PANITUMUMAB
     Indication: Colorectal cancer metastatic
     Route: 065
     Dates: start: 20240513
  2. VECTIBIX [Suspect]
     Active Substance: PANITUMUMAB
     Route: 065
     Dates: start: 202409
  3. LEUCOVORIN [Suspect]
     Active Substance: LEUCOVORIN\LEUCOVORIN CALCIUM
     Indication: Colorectal cancer metastatic
     Route: 065
     Dates: start: 20240429
  4. LEUCOVORIN [Suspect]
     Active Substance: LEUCOVORIN\LEUCOVORIN CALCIUM
     Route: 065
     Dates: start: 202409
  5. FLUOROURACIL [Suspect]
     Active Substance: FLUOROURACIL
     Indication: Colorectal cancer metastatic
     Route: 065
     Dates: start: 20240429
  6. FLUOROURACIL [Suspect]
     Active Substance: FLUOROURACIL
     Route: 065
     Dates: start: 202409
  7. OXALIPLATIN [Suspect]
     Active Substance: OXALIPLATIN
     Indication: Colorectal cancer metastatic
     Route: 065
     Dates: start: 20240429, end: 202409
  8. OXALIPLATIN [Suspect]
     Active Substance: OXALIPLATIN
     Route: 065
     Dates: start: 202409, end: 202410
  9. LEUCOVORIN [Suspect]
     Active Substance: LEUCOVORIN\LEUCOVORIN CALCIUM
     Indication: Colorectal cancer metastatic
     Route: 065
     Dates: start: 202410
  10. LEUCOVORIN [Suspect]
     Active Substance: LEUCOVORIN\LEUCOVORIN CALCIUM
     Route: 065
     Dates: start: 202409

REACTIONS (6)
  - Neutropenia [Recovering/Resolving]
  - Nail operation [Recovered/Resolved]
  - Hepatic steatosis [Unknown]
  - Hepatomegaly [Unknown]
  - Aphthous ulcer [Recovering/Resolving]
  - Paronychia [Recovering/Resolving]

NARRATIVE: CASE EVENT DATE: 20240901
